FAERS Safety Report 5269582-4 (Version None)
Quarter: 2007Q1

REPORT INFORMATION
  Report Type: 
  Country: None (occurrence: None)
  Receive Date: 20070320
  Receipt Date: 20070308
  Transmission Date: 20070707
  Serious: Yes (Other)
  Sender: FDA-Public Use
  Company Number: US-JNJFOC-20070302634

PATIENT
  Sex: Female
  Weight: 57.61 kg

DRUGS (6)
  1. DURAGESIC-100 [Suspect]
     Indication: PAIN
     Route: 062
  2. BUSPAR [Concomitant]
     Indication: ANXIETY
     Route: 048
  3. VALIUM [Concomitant]
     Indication: ANXIETY
  4. ULTRAM [Concomitant]
     Indication: BREAKTHROUGH PAIN
     Route: 048
  5. DALMANE [Concomitant]
     Indication: SLEEP DISORDER
     Route: 048
  6. TOPAMAX [Concomitant]
     Indication: ANXIETY
     Route: 048

REACTIONS (11)
  - CRYING [None]
  - DETOXIFICATION [None]
  - DRUG EFFECT INCREASED [None]
  - FEELING ABNORMAL [None]
  - HYPERHIDROSIS [None]
  - INCORRECT DRUG ADMINISTRATION DURATION [None]
  - PHARMACEUTICAL PRODUCT COMPLAINT [None]
  - PRESYNCOPE [None]
  - PSYCHOTIC DISORDER [None]
  - TREMOR [None]
  - WEIGHT INCREASED [None]
